FAERS Safety Report 23571647 (Version 1)
Quarter: 2024Q1

REPORT INFORMATION
  Report Type: Report from Study
  Country: MX (occurrence: None)
  Receive Date: 20240227
  Receipt Date: 20240227
  Transmission Date: 20240410
  Serious: Yes (Other)
  Sender: FDA-Public Use
  Company Number: 2024A045799

PATIENT
  Age: 937 Month
  Sex: Female

DRUGS (1)
  1. DAPAGLIFLOZIN [Suspect]
     Active Substance: DAPAGLIFLOZIN
     Indication: Cardiac failure
     Route: 048
     Dates: start: 202311

REACTIONS (4)
  - Arterial occlusive disease [Recovering/Resolving]
  - Skin discolouration [Recovering/Resolving]
  - Blister [Recovering/Resolving]
  - Skin fissures [Recovered/Resolved]

NARRATIVE: CASE EVENT DATE: 20240101
